FAERS Safety Report 9898286 (Version 2)
Quarter: 2014Q1

REPORT INFORMATION
  Report Type: Spontaneous
  Country: DE (occurrence: DE)
  Receive Date: 20140214
  Receipt Date: 20140224
  Transmission Date: 20141002
  Serious: Yes (Life-Threatening, Hospitalization, Disabling, Congenital Anomaly)
  Sender: FDA-Public Use
  Company Number: DE-TEVA-462069GER

PATIENT
  Age: 0 Day
  Sex: Female

DRUGS (2)
  1. CITALOPRAM [Suspect]
     Route: 064
  2. INSULIN [Concomitant]
     Route: 064

REACTIONS (6)
  - Transposition of the great vessels [Not Recovered/Not Resolved]
  - Atrial septal defect [Not Recovered/Not Resolved]
  - Ebstein^s anomaly [Not Recovered/Not Resolved]
  - Pulmonary valve stenosis congenital [Not Recovered/Not Resolved]
  - Tricuspid valve disease [Not Recovered/Not Resolved]
  - Exposure during pregnancy [Not Recovered/Not Resolved]
